FAERS Safety Report 7129402 (Version 2)
Quarter: 2013Q4

REPORT INFORMATION
  Report Type: Spontaneous
  Country: US (occurrence: None)
  Receive Date: 20090910
  Receipt Date: 20131230
  Transmission Date: 20140711
  Serious: Yes (Hospitalization, Other)
  Sender: FDA-Public Use
  Company Number: 2009S1006954

PATIENT
  Age: 74 Year
  Sex: Female
  Weight: 79.38 kg

DRUGS (13)
  1. FLEET PHOSPHO-SODA [Suspect]
     Indication: COLONOSCOPY
     Dosage: PO
     Route: 048
     Dates: start: 20080221, end: 20080222
  2. BENAZEPRIL (BENAZEPRIL) [Concomitant]
  3. ZANTAC (RANITIDINE HYDROCHLORIDE) [Concomitant]
  4. PAXIL (PAROXETINE HYDROCHLORIDE) [Concomitant]
  5. LIPITOR (ATORVASTATIN CALCIUM) [Concomitant]
  6. TOPROL XL (METOPROLOL SUCCINATE) (100 MILLIGRAM) (METOPROLOL SUCCINATE) [Concomitant]
  7. LORAZEPAM (LORAZEPAM) [Concomitant]
  8. HYDROCHLOROTHIAZIDE (HYDROCHLOROTHIAZIDE) [Concomitant]
  9. NITROGLYCERIN [Concomitant]
  10. ASPIRIN (ACETYLSALICYLIC ACID) [Concomitant]
  11. CENTRUM SILVER (ASCORBIC ACID, PYRIDOXINE HYDROCHLORIDE, BIOTIN, TOCOPHEROL, FOLIC ACID, THIAMINE HYDROCHLORIDE, COLECALCIFEROL, CYANOCOBALAMIN, RETINOL, RIBOFLAVIN, PHYTOMENADIONE, NICOTINAMIDE, CALCIUM PANTOTHENATE, MAGNESIUM, MANGANESE, MOLYBDENUM, NI [Concomitant]
  12. OMEGA 3 (FISH OIL) [Concomitant]
  13. FOSAMAX (ALENDRONATE SODIUM) [Concomitant]

REACTIONS (3)
  - Renal failure chronic [None]
  - Renal tubular necrosis [None]
  - Nausea [None]
